FAERS Safety Report 11343291 (Version 1)
Quarter: 2015Q3

REPORT INFORMATION
  Report Type: Report from Study
  Country: FR (occurrence: FR)
  Receive Date: 20150806
  Receipt Date: 20150806
  Transmission Date: 20151125
  Serious: Yes (Other)
  Sender: FDA-Public Use
  Company Number: FR-ROCHE-1564293

PATIENT

DRUGS (1)
  1. VEMURAFENIB [Suspect]
     Active Substance: VEMURAFENIB
     Indication: MALIGNANT MELANOMA
     Dosage: 1920 MG OR LESS
     Route: 048

REACTIONS (6)
  - Rash [Unknown]
  - Hepatic function abnormal [Unknown]
  - Renal failure [Unknown]
  - Fatigue [Unknown]
  - Squamous cell carcinoma of skin [Unknown]
  - Diarrhoea [Unknown]
